FAERS Safety Report 19455066 (Version 3)
Quarter: 2021Q3

REPORT INFORMATION
  Report Type: Report from Study
  Country: ES (occurrence: ES)
  Receive Date: 20210623
  Receipt Date: 20210720
  Transmission Date: 20211014
  Serious: Yes (Life-Threatening, Hospitalization)
  Sender: FDA-Public Use
  Company Number: ES-PFIZER INC-2021680469

PATIENT

DRUGS (15)
  1. HERZUMA [Suspect]
     Active Substance: TRASTUZUMAB-PKRB
     Dosage: 500 MG
     Route: 042
     Dates: start: 20210525
  2. SIMVASTATIN. [Concomitant]
     Active Substance: SIMVASTATIN
     Indication: DYSLIPIDAEMIA
     Dosage: 20 MG, 1X/DAY (1/24 H)
     Route: 048
  3. IXIA [Concomitant]
     Active Substance: OLMESARTAN MEDOXOMIL
     Indication: HYPERTENSION
     Dosage: 20 MG, 1X/DAY (1/24 H)
  4. CIPROFLOXACIN. [Concomitant]
     Active Substance: CIPROFLOXACIN
     Dosage: 400 MG, BID
     Route: 048
     Dates: start: 20210608, end: 20210609
  5. CARBOPLATIN. [Suspect]
     Active Substance: CARBOPLATIN
     Dosage: 530 MG
     Route: 042
  6. LOPERAMIDE [Concomitant]
     Active Substance: LOPERAMIDE
     Dosage: 2 MG, QD
     Route: 048
     Dates: start: 20210531
  7. CISPLATIN. [Suspect]
     Active Substance: CISPLATIN
     Dosage: UNK
  8. PERTUZUMAB. [Suspect]
     Active Substance: PERTUZUMAB
     Dosage: 840 MG
     Route: 042
     Dates: start: 20210525
  9. PERTUZUMAB. [Suspect]
     Active Substance: PERTUZUMAB
     Dosage: 420 MG EVERY 3 WEEKS
     Route: 042
     Dates: start: 20210525, end: 20210615
  10. HERZUMA [Suspect]
     Active Substance: TRASTUZUMAB-PKRB
     Dosage: 370 MG, EVERY 3 WEEKS
     Route: 042
     Dates: start: 20210515, end: 20210515
  11. DOCETAXEL. [Suspect]
     Active Substance: DOCETAXEL
     Dosage: 88 MG, EVERY 3 WEEKS
     Route: 042
     Dates: start: 20210525, end: 20210615
  12. SERTRALINE [Concomitant]
     Active Substance: SERTRALINE HYDROCHLORIDE
     Indication: DEPRESSION
     Dosage: 50 MG, 1X/DAY (1/24 H)
     Route: 048
  13. DOCETAXEL. [Suspect]
     Active Substance: DOCETAXEL
     Dosage: 120 MG
     Route: 042
     Dates: start: 20210525
  14. CARBOPLATIN. [Suspect]
     Active Substance: CARBOPLATIN
     Dosage: 350 MG EVERY 3 WEEKS
     Route: 042
     Dates: start: 20210525, end: 20210615
  15. ULTRA LEVURA [SACCHAROMYCES BOULARDII] [Concomitant]
     Dosage: 250 MG, QD
     Route: 048
     Dates: start: 20210602

REACTIONS (11)
  - Diarrhoea [Not Recovered/Not Resolved]
  - Diarrhoea [Recovered/Resolved]
  - Nausea [Recovered/Resolved]
  - Hypotension [Recovering/Resolving]
  - Febrile neutropenia [Not Recovered/Not Resolved]
  - Vomiting [Not Recovered/Not Resolved]
  - Asthenia [Unknown]
  - Neutropenia [Not Recovered/Not Resolved]
  - Vomiting [Recovered/Resolved]
  - Gastrointestinal toxicity [Recovered/Resolved]
  - Nausea [Not Recovered/Not Resolved]

NARRATIVE: CASE EVENT DATE: 20210530
